FAERS Safety Report 21876854 (Version 1)
Quarter: 2023Q1

REPORT INFORMATION
  Report Type: Spontaneous
  Country: FR (occurrence: FR)
  Receive Date: 20230118
  Receipt Date: 20230118
  Transmission Date: 20230418
  Serious: Yes (Other)
  Sender: FDA-Public Use
  Company Number: None

PATIENT
  Age: 40 Year
  Sex: Male

DRUGS (5)
  1. SILDENAFIL [Suspect]
     Active Substance: SILDENAFIL
     Indication: Product used for unknown indication
     Dosage: 600MG/SESSION 3X/WEEK
  2. 3-CHLOROMETHCATHINONE [Suspect]
     Active Substance: 3-CHLOROMETHCATHINONE
     Indication: Product used for unknown indication
     Dosage: 3 TO 4 G 2 TO 3 X/WEEK IV
     Route: 042
  3. 3-CHLOROMETHCATHINONE [Suspect]
     Active Substance: 3-CHLOROMETHCATHINONE
     Dosage: 5 TO 6 TRACES / DAY IN THE MORNING IN SNIFF,
  4. 3-METHYLMETHCATHINONE [Suspect]
     Active Substance: 3-METHYLMETHCATHINONE
     Indication: Product used for unknown indication
     Dosage: 3 TO 4 G 2 TO 3 X/WEEK IV
     Route: 042
  5. 3-METHYLMETHCATHINONE [Suspect]
     Active Substance: 3-METHYLMETHCATHINONE
     Dosage: 5 TO 6 TRACES / DAY IN THE MORNING IN SNIFF ,DURATION :6 MONTHS

REACTIONS (1)
  - Drug dependence [Not Recovered/Not Resolved]
